FAERS Safety Report 19871159 (Version 1)
Quarter: 2021Q3

REPORT INFORMATION
  Report Type: Spontaneous
  Country: US (occurrence: US)
  Receive Date: 20210922
  Receipt Date: 20210922
  Transmission Date: 20211014
  Serious: Yes (Hospitalization)
  Sender: FDA-Public Use
  Company Number: None

PATIENT
  Age: 71 Year
  Sex: Female
  Weight: 117.05 kg

DRUGS (1)
  1. ASPIRIN. [Suspect]
     Active Substance: ASPIRIN
     Dates: start: 20191001, end: 20210716

REACTIONS (6)
  - Lung infiltration [None]
  - White blood cell count increased [None]
  - Dyspnoea [None]
  - Pneumonia [None]
  - Neutrophil count increased [None]
  - Asthenia [None]

NARRATIVE: CASE EVENT DATE: 20210716
